FAERS Safety Report 7817051-7 (Version None)
Quarter: 2011Q4

REPORT INFORMATION
  Report Type: 
  Country: None (occurrence: None)
  Receive Date: 20111017
  Receipt Date: 20111003
  Transmission Date: 20120403
  Serious: Yes (Hospitalization, Other)
  Sender: FDA-Public Use
  Company Number: PHHY2011TW88320

PATIENT
  Sex: Female
  Weight: 64.4 kg

DRUGS (1)
  1. ALISKIREN [Suspect]
     Indication: HYPERTENSION
     Dosage: 150 MG,
     Route: 048
     Dates: start: 20110326

REACTIONS (4)
  - ROAD TRAFFIC ACCIDENT [None]
  - LYMPHADENOPATHY MEDIASTINAL [None]
  - CASTLEMAN'S DISEASE [None]
  - CHEST PAIN [None]
